FAERS Safety Report 19675181 (Version 3)
Quarter: 2022Q2

REPORT INFORMATION
  Report Type: Spontaneous
  Country: US (occurrence: None)
  Receive Date: 20210809
  Receipt Date: 20220617
  Transmission Date: 20220721
  Serious: Yes (Life-Threatening)
  Sender: FDA-Public Use
  Company Number: 2021A659390

PATIENT
  Age: 17461 Day
  Sex: Female
  Weight: 87.5 kg

DRUGS (3)
  1. FASENRA [Suspect]
     Active Substance: BENRALIZUMAB
     Indication: Asthma
     Dosage: 30.0MG UNKNOWN
     Route: 058
     Dates: start: 20210802, end: 20210802
  2. XOLAIR [Concomitant]
     Active Substance: OMALIZUMAB
  3. EPINEPHRINE [Concomitant]
     Active Substance: EPINEPHRINE

REACTIONS (4)
  - Anaphylactic reaction [Recovered/Resolved]
  - Tachycardia [Recovered/Resolved]
  - Dyspnoea [Recovered/Resolved]
  - Stridor [Recovered/Resolved]

NARRATIVE: CASE EVENT DATE: 20210802
